FAERS Safety Report 20156458 (Version 1)
Quarter: 2021Q4

REPORT INFORMATION
  Report Type: Spontaneous
  Country: US (occurrence: None)
  Receive Date: 20211207
  Receipt Date: 20211207
  Transmission Date: 20220303
  Serious: Yes (Hospitalization)
  Sender: FDA-Public Use
  Company Number: None

PATIENT
  Sex: Male
  Weight: 103.1 kg

DRUGS (5)
  1. DAUNORUBICIN [Suspect]
     Active Substance: DAUNORUBICIN
  2. METHOTREXATE [Concomitant]
  3. ONCASPAR [Concomitant]
     Active Substance: PEGASPARGASE
  4. PREDNISOLONE [Concomitant]
     Active Substance: PREDNISOLONE
  5. VINCRISTINE SULFATE [Concomitant]
     Active Substance: VINCRISTINE SULFATE

REACTIONS (6)
  - Cellulitis [None]
  - Pseudomonas test positive [None]
  - Hypoxia [None]
  - Bradycardia [None]
  - Hypotension [None]
  - Oxygen saturation decreased [None]

NARRATIVE: CASE EVENT DATE: 20211105
